FAERS Safety Report 6646194-9 (Version None)
Quarter: 2010Q1

REPORT INFORMATION
  Report Type: 
  Country: None (occurrence: None)
  Receive Date: 20100318
  Receipt Date: 20100306
  Transmission Date: 20100710
  Serious: Yes (Hospitalization, Other)
  Sender: FDA-Public Use
  Company Number: 2010AP000462

PATIENT
  Age: 41 Year
  Sex: Male

DRUGS (5)
  1. SERTRALINE HCL [Suspect]
     Dosage: 200 MG; QD; 100 MG; BID
  2. ARIPIPRAZOLE [Suspect]
     Dosage: 20 MG; QD
  3. LEVOTHYROXINE SODIUM [Concomitant]
  4. SIMVASTATIN [Concomitant]
  5. AMLODIPINE [Concomitant]

REACTIONS (15)
  - ASPARTATE AMINOTRANSFERASE INCREASED [None]
  - BLOOD CHOLESTEROL INCREASED [None]
  - BLOOD CORTISOL INCREASED [None]
  - BLOOD CREATINE PHOSPHOKINASE INCREASED [None]
  - BLOOD PRESSURE DECREASED [None]
  - BLOOD TRIGLYCERIDES INCREASED [None]
  - DIZZINESS [None]
  - DRUG SCREEN POSITIVE [None]
  - FACIAL PALSY [None]
  - HAEMOGLOBIN DECREASED [None]
  - HEART RATE DECREASED [None]
  - HYPOAESTHESIA [None]
  - MYXOEDEMA COMA [None]
  - PARAESTHESIA [None]
  - WEIGHT INCREASED [None]
